FAERS Safety Report 19613596 (Version 1)
Quarter: 2021Q3

REPORT INFORMATION
  Report Type: Spontaneous
  Country: US (occurrence: US)
  Receive Date: 20210727
  Receipt Date: 20210727
  Transmission Date: 20211014
  Serious: No
  Sender: FDA-Public Use
  Company Number: None

PATIENT
  Age: 2 Year
  Sex: Male
  Weight: 11.25 kg

DRUGS (3)
  1. CULTURELL PROBIOTIC + FIBER [Concomitant]
  2. NOVAFERRUM MULTIVITAMIN WITH IRON [Concomitant]
  3. MIRALAX [Suspect]
     Active Substance: POLYETHYLENE GLYCOL 3350
     Indication: CONSTIPATION
     Dosage: ?          OTHER FREQUENCY:3X/WEEK;?
     Route: 048
     Dates: start: 20210628, end: 20210724

REACTIONS (5)
  - Paranoia [None]
  - Separation anxiety disorder [None]
  - Mood swings [None]
  - Obsessive-compulsive disorder [None]
  - Aggression [None]

NARRATIVE: CASE EVENT DATE: 20210722
